FAERS Safety Report 21957886 (Version 2)
Quarter: 2023Q1

REPORT INFORMATION
  Report Type: Spontaneous
  Country: JP (occurrence: JP)
  Receive Date: 20230206
  Receipt Date: 20230220
  Transmission Date: 20230418
  Serious: Yes (Hospitalization)
  Sender: FDA-Public Use
  Company Number: JP-TEVA-2023-JP-2851824

PATIENT
  Age: 17 Year
  Sex: Female

DRUGS (3)
  1. LOXOPROFEN [Suspect]
     Active Substance: LOXOPROFEN
     Indication: Pericarditis
     Dosage: 180 MILLIGRAM DAILY; ONCE A DAY
     Route: 065
  2. CELECOXIB [Suspect]
     Active Substance: CELECOXIB
     Indication: Pericarditis
     Dosage: 200 MILLIGRAM DAILY; ONCE A DAY
     Route: 065
  3. ACETAMINOPHEN [Concomitant]
     Active Substance: ACETAMINOPHEN
     Indication: Pericarditis
     Route: 065

REACTIONS (4)
  - Renal disorder [Unknown]
  - Nephropathy toxic [Unknown]
  - Takayasu^s arteritis [Unknown]
  - Renal artery stenosis [Not Recovered/Not Resolved]
